FAERS Safety Report 4401356-6 (Version None)
Quarter: 2004Q3

REPORT INFORMATION
  Report Type: 
  Country: None (occurrence: None)
  Receive Date: 20040907
  Receipt Date: 20040323
  Transmission Date: 20050211
  Serious: No
  Sender: FDA-Public Use
  Company Number: US-BRISTOL-MYERS SQUIBB COMPANY-12539805

PATIENT
  Age: 72 Year
  Sex: Female
  Weight: 71 kg

DRUGS (3)
  1. COUMADIN [Suspect]
     Indication: CAROTID ENDARTERECTOMY
     Route: 048
     Dates: start: 19971003
  2. VITAMIN E [Concomitant]
  3. PREVACID [Concomitant]

REACTIONS (5)
  - ASTHENIA [None]
  - DIZZINESS [None]
  - HEART RATE INCREASED [None]
  - HYPERHIDROSIS [None]
  - LOSS OF CONSCIOUSNESS [None]
